FAERS Safety Report 7301912-1 (Version None)
Quarter: 2011Q1

REPORT INFORMATION
  Report Type: 
  Country: None (occurrence: None)
  Receive Date: 20110218
  Receipt Date: 20110208
  Transmission Date: 20110831
  Serious: Yes (Hospitalization, Other)
  Sender: FDA-Public Use
  Company Number: US-ROCHE-755221

PATIENT
  Age: 65 Year
  Sex: Female

DRUGS (10)
  1. HERCEPTIN [Suspect]
     Dosage: FORM INFUSION; LAST DOSE PRIOR OT SAE ON 30 DEC 2010, THERAPY DELAYED.
     Route: 042
  2. CARBOPLATIN [Suspect]
     Indication: BREAST CANCER
     Route: 065
     Dates: start: 20101202
  3. LOPRESSOR [Concomitant]
  4. PACLITAXEL [Suspect]
     Indication: BREAST CANCER
     Route: 065
     Dates: start: 20101202
  5. PACLITAXEL [Suspect]
     Route: 065
     Dates: start: 20101223
  6. NORMAL SALINE [Concomitant]
     Dosage: 1000 CC PER DAY.
  7. ASA [Concomitant]
  8. SYNTHROID [Concomitant]
  9. HERCEPTIN [Suspect]
     Indication: BREAST CANCER
     Dosage: LADING DOSE
     Route: 042
     Dates: start: 20101202
  10. CARBOPLATIN [Suspect]
     Route: 065
     Dates: start: 20101223

REACTIONS (5)
  - MYOCARDIAL INFARCTION [None]
  - HEART INJURY [None]
  - TROPONIN INCREASED [None]
  - VOMITING [None]
  - PAIN IN EXTREMITY [None]
